FAERS Safety Report 9961479 (Version 2)
Quarter: 2014Q2

REPORT INFORMATION
  Report Type: Spontaneous
  Country: US (occurrence: US)
  Receive Date: 20140305
  Receipt Date: 20140415
  Transmission Date: 20141212
  Serious: Yes (Other)
  Sender: FDA-Public Use
  Company Number: US-NOVOPROD-401563

PATIENT
  Age: 15 Year
  Sex: Male
  Weight: 60.5 kg

DRUGS (2)
  1. NORDITROPIN FLEXPRO 10 MG/ML [Suspect]
     Indication: GROWTH HORMONE DEFICIENCY
     Dosage: 2.5 MG, 6 DAYS A WEEK
     Route: 058
     Dates: start: 2003, end: 20140218
  2. DIFFERIN [Concomitant]
     Indication: PRODUCT USED FOR UNKNOWN INDICATION
     Dosage: UNK
     Dates: start: 20120209, end: 20140303

REACTIONS (1)
  - Synovial sarcoma [Not Recovered/Not Resolved]
